APPROVED DRUG PRODUCT: SODIUM CHLORIDE 0.9% IN PLASTIC CONTAINER
Active Ingredient: SODIUM CHLORIDE
Strength: 90MG/10ML (9MG/ML)
Dosage Form/Route: SOLUTION;INJECTION
Application: A077407 | Product #002 | TE Code: AP
Applicant: TARO PHARMACEUTICALS USA INC
Approved: Aug 11, 2006 | RLD: No | RS: Yes | Type: RX